FAERS Safety Report 8272134-5 (Version None)
Quarter: 2012Q2

REPORT INFORMATION
  Report Type: 
  Country: None (occurrence: None)
  Receive Date: 20120410
  Receipt Date: 20120305
  Transmission Date: 20120825
  Serious: No
  Sender: FDA-Public Use
  Company Number: US-ASTRAZENECA-2012SE02521

PATIENT
  Age: 69 Year
  Sex: Female

DRUGS (11)
  1. EPINEPHRINE [Concomitant]
  2. MUCINEX D [Concomitant]
  3. VANDETANIB [Suspect]
     Indication: THYROID CANCER
     Route: 048
  4. VANDETANIB [Suspect]
     Route: 048
  5. FEXOFENADINE HCL [Concomitant]
  6. CEPHALEXIN [Concomitant]
  7. NASONEX [Concomitant]
  8. LEVOTHYROXINE SODIUM [Concomitant]
  9. ATENOLOL [Concomitant]
  10. DIPHENOXYLATE HCL + ATROPINE SULFATE [Concomitant]
  11. ASPIRIN ADULT LOW STRENGTH [Concomitant]

REACTIONS (4)
  - NOCTURNAL FEAR [None]
  - PALPITATIONS [None]
  - FATIGUE [None]
  - ANXIETY [None]
